FAERS Safety Report 9275079 (Version 4)
Quarter: 2013Q2

REPORT INFORMATION
  Report Type: Report from Study
  Country: IT (occurrence: IT)
  Receive Date: 20130507
  Receipt Date: 20130530
  Transmission Date: 20140414
  Serious: Yes (Hospitalization)
  Sender: FDA-Public Use
  Company Number: PHHY2013IT029278

PATIENT
  Age: 73 Year
  Sex: Male
  Weight: 88 kg

DRUGS (25)
  1. CERTICAN [Suspect]
     Indication: PROPHYLAXIS AGAINST TRANSPLANT REJECTION
     Dosage: 1 MG, UNK
     Route: 048
     Dates: start: 20110502, end: 20120420
  2. CERTICAN [Suspect]
     Dosage: 0.25 MG (2 TABLETS)
  3. CERTICAN [Suspect]
     Dosage: 0.25 MG (2 TABLETS)
  4. DELTACORTENE [Concomitant]
     Dosage: 1 DF, UNK
  5. LANSOX [Concomitant]
     Dosage: 1 DF, UNK
  6. ACTRAPID MC [Concomitant]
     Dosage: 6 U BEFORE BREAKFAST
  7. ACTRAPID MC [Concomitant]
     Dosage: 16 U BEFORE BREAKFAST
  8. ACTRAPID MC [Concomitant]
     Dosage: 10 UNITS BEFORE DINNER
  9. ACTRAPID MC [Concomitant]
     Dosage: 100 IU/ML, UNK
  10. LASIX [Concomitant]
     Dosage: 2 DF, UNK
  11. LASIX [Concomitant]
     Dosage: 2 DF, UNK
  12. ALDACTONE [Concomitant]
     Dosage: 2 DF, UNK
  13. CARDICOR [Concomitant]
     Dosage: 1 DF, UNK
  14. NITRODERM [Concomitant]
     Dosage: 10:1 SYSTEM 8 HOUR 08:00 AM -} 08:00 PM
  15. TEGRETOL [Concomitant]
     Dosage: HALF A TABLET
  16. TEGRETOL [Concomitant]
     Dosage: 1 DF
  17. ZYLORIC [Concomitant]
     Dosage: HALF A TABLET
  18. TICLOPIDINE [Concomitant]
     Dosage: 1 DF, UNK
  19. AVODART [Concomitant]
     Dosage: 1 DF
  20. OMNIC [Concomitant]
     Dosage: 1 DF, UNK
  21. FUREDAN [Concomitant]
     Dosage: 2 DF, UNK
  22. LANTUS [Concomitant]
     Dosage: 16 U
  23. DIBASE [Concomitant]
     Dosage: 20 DROPS/WEEK (ON SUNDAY)
  24. DIBASE [Concomitant]
     Dosage: 10 IU/ML, UNK
     Route: 048
  25. DIURETICS [Concomitant]

REACTIONS (7)
  - Pyrexia [Recovered/Resolved]
  - Proteinuria [Recovered/Resolved]
  - Cardiac failure [Recovered/Resolved]
  - Splenomegaly [Unknown]
  - Pyelocaliectasis [Recovered/Resolved]
  - Benign prostatic hyperplasia [Unknown]
  - Immunosuppressant drug level decreased [Unknown]
